FAERS Safety Report 23069927 (Version 3)
Quarter: 2023Q4

REPORT INFORMATION
  Report Type: Spontaneous
  Country: NL (occurrence: NL)
  Receive Date: 20231016
  Receipt Date: 20231019
  Transmission Date: 20240110
  Serious: Yes (Death, Life-Threatening, Hospitalization)
  Sender: FDA-Public Use
  Company Number: None

PATIENT
  Age: 52 Year
  Sex: Female
  Weight: 79.5 kg

DRUGS (12)
  1. PANTOPRAZOLE [Suspect]
     Active Substance: PANTOPRAZOLE
     Indication: Helicobacter infection
     Dosage: 40 MILLIGRAM, Q12H
     Route: 065
     Dates: start: 20230829, end: 20230904
  2. AMOXICILLIN [Suspect]
     Active Substance: AMOXICILLIN
     Indication: Helicobacter infection
     Dosage: 1000 MILLIGRAM, Q12H
     Route: 065
     Dates: start: 20230830, end: 20230906
  3. CLARITHROMYCIN [Suspect]
     Active Substance: CLARITHROMYCIN
     Indication: Helicobacter infection
     Dosage: 500 MILLIGRAM, Q12H
     Route: 065
     Dates: start: 20230830, end: 20230906
  4. TRAMADOL [Concomitant]
     Active Substance: TRAMADOL\TRAMADOL HYDROCHLORIDE
     Dosage: UNK
     Dates: start: 20230903, end: 20230906
  5. IBUPROFEN [Concomitant]
     Active Substance: IBUPROFEN
     Dosage: UNK
  6. FLUTICASONPROPIONAAT [Concomitant]
     Dosage: UNK
  7. ESOMEPRAZOLE [Concomitant]
     Active Substance: ESOMEPRAZOLE
     Dosage: UNK (ENTERIC COATED TABLET)
     Dates: start: 20230904
  8. RIZATRIPTAN [Concomitant]
     Active Substance: RIZATRIPTAN
     Dosage: UNK
  9. OMEPRAZOLE [Concomitant]
     Active Substance: OMEPRAZOLE
     Dosage: UNK
     Dates: start: 20230828, end: 20230830
  10. ZOLMITRIPTAN [Concomitant]
     Active Substance: ZOLMITRIPTAN
     Dosage: UNK
  11. AZITHROMYCIN [Concomitant]
     Active Substance: AZITHROMYCIN
     Dosage: UNK
     Dates: start: 20230903, end: 20230906
  12. ACETAMINOPHEN\CAFFEINE\PROPYPHENAZONE [Concomitant]
     Active Substance: ACETAMINOPHEN\CAFFEINE\PROPYPHENAZONE
     Dosage: UNK
     Dates: start: 20230904

REACTIONS (4)
  - Pancreatitis necrotising [Fatal]
  - Intestinal ischaemia [Fatal]
  - Renal impairment [Fatal]
  - Ascites [Fatal]
